FAERS Safety Report 11532458 (Version 1)
Quarter: 2015Q3

REPORT INFORMATION
  Report Type: Spontaneous
  Country: US (occurrence: US)
  Receive Date: 20150903
  Receipt Date: 20150903
  Transmission Date: 20151125
  Serious: No
  Sender: FDA-Public Use
  Company Number: US-ELI_LILLY_AND_COMPANY-US201202002670

PATIENT
  Age: 62 Year
  Sex: Female

DRUGS (3)
  1. HUMALOG MIX50/50 [Suspect]
     Active Substance: INSULIN LISPRO
     Indication: TYPE 2 DIABETES MELLITUS
     Dosage: 10 U, BID
     Dates: start: 20120204
  2. INSULIN [Concomitant]
     Active Substance: INSULIN NOS
  3. ORAL ANTIDIABETICS [Concomitant]
     Active Substance: UNSPECIFIED INGREDIENT

REACTIONS (10)
  - Visual acuity reduced [Unknown]
  - Gastrointestinal bacterial infection [Unknown]
  - Hypoacusis [Unknown]
  - Malaise [Unknown]
  - Blood glucose increased [Unknown]
  - Tremor [Unknown]
  - Dyspnoea [Unknown]
  - Diarrhoea [Unknown]
  - Hunger [Unknown]
  - Disorientation [Unknown]

NARRATIVE: CASE EVENT DATE: 201202
